FAERS Safety Report 6707225-0 (Version None)
Quarter: 2010Q2

REPORT INFORMATION
  Report Type: 
  Country: None (occurrence: None)
  Receive Date: 20100503
  Receipt Date: 20090312
  Transmission Date: 20101027
  Serious: No
  Sender: FDA-Public Use
  Company Number: US-ASTRAZENECA-2009UW06576

PATIENT
  Age: 52 Year
  Sex: Female

DRUGS (5)
  1. NEXIUM [Suspect]
     Indication: GASTROOESOPHAGEAL REFLUX DISEASE
     Route: 048
  2. NEURONTIN [Concomitant]
  3. AVAPRO [Concomitant]
  4. SINGULAIR [Concomitant]
  5. XANAX [Concomitant]

REACTIONS (1)
  - FEELING ABNORMAL [None]
